FAERS Safety Report 8699022 (Version 2)
Quarter: 2012Q4

REPORT INFORMATION
  Report Type: 
  Country: US (occurrence: US)
  Receive Date: 20120802
  Receipt Date: 20121027
  Transmission Date: 20130627
  Serious: Yes (Other)
  Sender: FDA-Public Use
  Company Number: US-009507513-1207USA005698

PATIENT
  Age: 70 Year
  Sex: Female

DRUGS (2)
  1. COSOPT [Suspect]
     Dosage: UNK
     Route: 047
     Dates: start: 20120713, end: 20120717
  2. LATANOPROST [Concomitant]

REACTIONS (5)
  - Eye discharge [Recovering/Resolving]
  - Eye pain [Recovering/Resolving]
  - Lacrimation increased [Recovering/Resolving]
  - Ocular hyperaemia [Recovering/Resolving]
  - Eyelid ptosis [Recovering/Resolving]
